FAERS Safety Report 19505728 (Version 2)
Quarter: 2022Q1

REPORT INFORMATION
  Report Type: Report from Study
  Country: MY (occurrence: MY)
  Receive Date: 20210708
  Receipt Date: 20220221
  Transmission Date: 20220423
  Serious: No
  Sender: FDA-Public Use
  Company Number: MY-KARYOPHARM-2021KPT000845

PATIENT
  Age: 54 Year
  Sex: Male

DRUGS (3)
  1. SELINEXOR [Suspect]
     Active Substance: SELINEXOR
     Indication: Marginal zone lymphoma
     Dosage: 40 MG, 2X/WEEK
     Route: 048
     Dates: start: 20210425, end: 20210824
  2. SELINEXOR [Suspect]
     Active Substance: SELINEXOR
     Dosage: 40 MG, WEEKLY
     Route: 048
     Dates: start: 20210824
  3. GRANISETRON [Concomitant]
     Active Substance: GRANISETRON
     Indication: Prophylaxis

REACTIONS (4)
  - Malaise [Unknown]
  - Hyperhidrosis [Unknown]
  - Muscle spasms [Unknown]
  - Nausea [Unknown]

NARRATIVE: CASE EVENT DATE: 20210601
